FAERS Safety Report 12216954 (Version 2)
Quarter: 2016Q2

REPORT INFORMATION
  Report Type: Report from Study
  Country: BR (occurrence: BR)
  Receive Date: 20160329
  Receipt Date: 20160419
  Transmission Date: 20160815
  Serious: Yes (Hospitalization, Other)
  Sender: FDA-Public Use
  Company Number: PHHY2016BR041034

PATIENT
  Sex: Male
  Weight: 72 kg

DRUGS (2)
  1. EXJADE [Suspect]
     Active Substance: DEFERASIROX
     Indication: ANAEMIA
     Dosage: 3 DF, QD
     Route: 048
  2. EXJADE [Suspect]
     Active Substance: DEFERASIROX
     Dosage: 2 DF, QD
     Route: 048

REACTIONS (12)
  - Weight decreased [Unknown]
  - Hypersensitivity [Recovering/Resolving]
  - Diarrhoea [Unknown]
  - Wrong technique in product usage process [Unknown]
  - Gastrointestinal infection [Unknown]
  - Haemorrhage [Unknown]
  - Urinary tract infection [Unknown]
  - Confusional state [Unknown]
  - Cough [Unknown]
  - Erythema [Unknown]
  - Pruritus [Unknown]
  - Sneezing [Unknown]
